FAERS Safety Report 15467315 (Version 3)
Quarter: 2018Q4

REPORT INFORMATION
  Report Type: Spontaneous
  Country: NL (occurrence: NL)
  Receive Date: 20181005
  Receipt Date: 20181122
  Transmission Date: 20190204
  Serious: Yes (Hospitalization, Other)
  Sender: FDA-Public Use
  Company Number: NL-AUROBINDO-AUR-APL-2018-047701

PATIENT
  Age: 29 Year
  Sex: Female

DRUGS (1)
  1. QUETIAPINE FILM-COATED TABLETS 300MG [Suspect]
     Active Substance: QUETIAPINE
     Indication: PRODUCT USED FOR UNKNOWN INDICATION
     Dosage: 8 TABLETS OF QUETIAPINE 300 MG (2400 MG) ; IN TOTAL
     Route: 048

REACTIONS (7)
  - Delirium [Recovering/Resolving]
  - Intentional overdose [Unknown]
  - Sinus tachycardia [Unknown]
  - Hallucination, visual [Recovering/Resolving]
  - Coma scale abnormal [Unknown]
  - Poisoning [Unknown]
  - Psychomotor hyperactivity [Recovering/Resolving]
